FAERS Safety Report 24807184 (Version 1)
Quarter: 2025Q1

REPORT INFORMATION
  Report Type: Spontaneous
  Country: US (occurrence: US)
  Receive Date: 20250105
  Receipt Date: 20250105
  Transmission Date: 20250409
  Serious: Yes (Hospitalization, Other)
  Sender: DR REDDYS
  Company Number: US-DRL-USA-USA/2025/01/000031

PATIENT
  Age: 50 Year
  Sex: Male

DRUGS (3)
  1. LEVOFLOXACIN [Suspect]
     Active Substance: LEVOFLOXACIN
     Indication: Intestinal tuberculosis
  2. LINEZOLID [Suspect]
     Active Substance: LINEZOLID
     Indication: Intestinal tuberculosis
  3. RIFABUTIN [Suspect]
     Active Substance: RIFABUTIN
     Indication: Intestinal tuberculosis

REACTIONS (3)
  - Pulmonary embolism [Unknown]
  - Disease progression [Unknown]
  - Drug ineffective for unapproved indication [Unknown]
